FAERS Safety Report 9688818 (Version 2)
Quarter: 2014Q1

REPORT INFORMATION
  Report Type: Spontaneous
  Country: DE (occurrence: None)
  Receive Date: 20131112
  Receipt Date: 20140304
  Transmission Date: 20141002
  Serious: Yes (Hospitalization, Other)
  Sender: FDA-Public Use
  Company Number: 1310-1402

PATIENT
  Age: 84 Year
  Sex: Male

DRUGS (7)
  1. EYLEA (AFLIBERCEPT) (INJECTION) [Suspect]
     Indication: AGE-RELATED MACULAR DEGENERATION
     Route: 031
     Dates: start: 20130811, end: 20130811
  2. GATIFLO (GATIFLOXACIN) [Concomitant]
  3. CRAVIT (LEVOFLOXACINI) [Concomitant]
  4. OMEPRAL (OMEPRAZOLE) [Concomitant]
  5. OLMETEC (OLMESARTAN MEDOXOMIL) [Concomitant]
  6. XYLOCAINE (LIDOCAINE) [Concomitant]
  7. NIFELANTERN CR (NIFEDIPINE) [Concomitant]

REACTIONS (1)
  - Retinal haemorrhage [None]
